FAERS Safety Report 7237349-3 (Version None)
Quarter: 2011Q1

REPORT INFORMATION
  Report Type: 
  Country: None (occurrence: None)
  Receive Date: 20110121
  Receipt Date: 20110117
  Transmission Date: 20110831
  Serious: Yes (Hospitalization)
  Sender: FDA-Public Use
  Company Number: NL-MEDIMMUNE-MEDI-0012100

PATIENT
  Sex: Male
  Weight: 8.38 kg

DRUGS (2)
  1. SYNAGIS [Suspect]
     Route: 030
     Dates: start: 20101222, end: 20101222
  2. SYNAGIS [Suspect]
     Route: 030
     Dates: start: 20101029, end: 20101124

REACTIONS (3)
  - PYREXIA [None]
  - PNEUMONIA [None]
  - DYSPNOEA [None]
